FAERS Safety Report 5616572-5 (Version None)
Quarter: 2008Q1

REPORT INFORMATION
  Report Type: 
  Country: None (occurrence: None)
  Receive Date: 20080207
  Receipt Date: 20080102
  Transmission Date: 20080703
  Serious: No
  Sender: FDA-Public Use
  Company Number: A0667368B

PATIENT
  Age: 27 Year
  Sex: Female

DRUGS (6)
  1. PAXIL CR [Suspect]
     Indication: OBSESSIVE-COMPULSIVE DISORDER
     Dosage: 75MG PER DAY
     Route: 048
  2. PAROXETINE [Suspect]
     Indication: OBSESSIVE-COMPULSIVE DISORDER
  3. ZYPREXA [Concomitant]
     Indication: OBSESSIVE-COMPULSIVE DISORDER
     Dates: start: 20061207, end: 20070709
  4. FLUOXETINE [Concomitant]
     Indication: OBSESSIVE-COMPULSIVE DISORDER
     Dates: start: 20061114, end: 20070109
  5. ATIVAN [Concomitant]
     Dosage: .5MG AS REQUIRED
  6. UNKNOWN MEDICATION [Concomitant]
     Indication: OBSESSIVE-COMPULSIVE DISORDER
     Dates: start: 20061207, end: 20070709

REACTIONS (2)
  - DELIVERY [None]
  - WEIGHT INCREASED [None]
